FAERS Safety Report 9555233 (Version 1)
Quarter: 2013Q3

REPORT INFORMATION
  Report Type: Spontaneous
  Country: US (occurrence: None)
  Receive Date: 20130805
  Receipt Date: 20130805
  Transmission Date: 20140515
  Serious: Yes (Other)
  Sender: FDA-Public Use
  Company Number: OPCR20130247

PATIENT
  Sex: Female

DRUGS (1)
  1. OPANA ER 40MG [Suspect]
     Indication: PAIN
     Dosage: 100 MG, 60 MG IN AM AND 40 MG IN PM, ORAL
     Route: 048

REACTIONS (2)
  - Intentional drug misuse [None]
  - Wrong technique in drug usage process [None]
